FAERS Safety Report 4787225-0 (Version None)
Quarter: 2005Q3

REPORT INFORMATION
  Report Type: 
  Country: None (occurrence: None)
  Receive Date: 20050927
  Receipt Date: 20050617
  Transmission Date: 20060218
  Serious: No
  Sender: FDA-Public Use
  Company Number: USA0506101047

PATIENT
  Sex: Female

DRUGS (6)
  1. STRATTERA [Suspect]
     Dosage: 80 MG DAY
  2. LEXAPRO [Concomitant]
  3. DIOVAN [Concomitant]
  4. SINGULAIR (MONTELUKAST  /01362601/) [Concomitant]
  5. ALLEGRA [Concomitant]
  6. ZYRTEC [Concomitant]

REACTIONS (2)
  - ANXIETY [None]
  - HEART RATE INCREASED [None]
